FAERS Safety Report 26151322 (Version 1)
Quarter: 2025Q4

REPORT INFORMATION
  Report Type: Spontaneous
  Country: US (occurrence: None)
  Receive Date: 20251212
  Receipt Date: 20251212
  Transmission Date: 20260118
  Serious: No
  Sender: FDA-CTU
  Company Number: None

PATIENT
  Age: 36 Year
  Sex: Male
  Weight: 75.6 kg

DRUGS (2)
  1. AJOVY [Suspect]
     Active Substance: FREMANEZUMAB-VFRM
     Indication: Migraine
     Dosage: OTHER QUANTITY : 1 INJECTION(S);?OTHER FREQUENCY : ONCE A MONTH;?OTHER ROUTE : INJECTED;
     Route: 050
     Dates: start: 20251005, end: 20251205
  2. IBUPROFEN [Concomitant]
     Active Substance: IBUPROFEN

REACTIONS (16)
  - Pharyngeal swelling [None]
  - Dysphagia [None]
  - Dyspnoea [None]
  - Chest discomfort [None]
  - Paraesthesia [None]
  - Blepharospasm [None]
  - Eye pruritus [None]
  - Palpitations [None]
  - Flatulence [None]
  - Gastrooesophageal reflux disease [None]
  - Throat irritation [None]
  - Chest pain [None]
  - Weight decreased [None]
  - Dizziness [None]
  - Anxiety [None]
  - White blood cell count increased [None]

NARRATIVE: CASE EVENT DATE: 20251119
